FAERS Safety Report 16007903 (Version 1)
Quarter: 2019Q1

REPORT INFORMATION
  Report Type: Spontaneous
  Country: US (occurrence: US)
  Receive Date: 20190226
  Receipt Date: 20190226
  Transmission Date: 20190418
  Serious: Yes (Other)
  Sender: FDA-Public Use
  Company Number: US-PFIZER INC-2019062346

PATIENT
  Age: 52 Year
  Sex: Female
  Weight: 113 kg

DRUGS (4)
  1. LYRICA [Suspect]
     Active Substance: PREGABALIN
     Indication: DIABETIC NEUROPATHY
     Dosage: 225 MG, 3X/DAY
     Route: 048
  2. LYRICA [Suspect]
     Active Substance: PREGABALIN
     Indication: BACK PAIN
  3. LYRICA [Suspect]
     Active Substance: PREGABALIN
     Indication: FIBROMYALGIA
     Dosage: 675 MG, DAILY (LYRICA 225 MG CAPSULE / QTY 90 /DAYS SUPPLY 30)
     Route: 048
  4. LYRICA [Suspect]
     Active Substance: PREGABALIN
     Indication: ARTHRITIS

REACTIONS (13)
  - Abdominal discomfort [Unknown]
  - Dyskinesia [Unknown]
  - Nausea [Unknown]
  - Malaise [Unknown]
  - Palpitations [Unknown]
  - Hyperhidrosis [Unknown]
  - Feeling abnormal [Unknown]
  - Muscle spasms [Unknown]
  - Prescribed overdose [Unknown]
  - Withdrawal syndrome [Unknown]
  - Diarrhoea [Unknown]
  - Cardiac neoplasm unspecified [Unknown]
  - Panic attack [Unknown]
